FAERS Safety Report 25801034 (Version 1)
Quarter: 2025Q3

REPORT INFORMATION
  Report Type: Spontaneous
  Country: CA (occurrence: CA)
  Receive Date: 20250915
  Receipt Date: 20250915
  Transmission Date: 20251021
  Serious: Yes (Hospitalization, Disabling, Other)
  Sender: AUROBINDO
  Company Number: CA-AUROBINDO-AUR-APL-2025-046209

PATIENT
  Age: 71 Year
  Sex: Male

DRUGS (1)
  1. TENOFOVIR [Suspect]
     Active Substance: TENOFOVIR
     Indication: Hepatitis B
     Dosage: 1 DOSAGE FORM, ONCE A DAY
     Route: 048

REACTIONS (2)
  - Fanconi syndrome [Recovering/Resolving]
  - Hip fracture [Recovering/Resolving]
